FAERS Safety Report 7772258-2 (Version None)
Quarter: 2011Q3

REPORT INFORMATION
  Report Type: 
  Country: None (occurrence: None)
  Receive Date: 20110922
  Receipt Date: 20100527
  Transmission Date: 20111222
  Serious: No
  Sender: FDA-Public Use
  Company Number: US-ASTRAZENECA-2008UW22409

PATIENT
  Age: 57 Year
  Sex: Male
  Weight: 84.8 kg

DRUGS (14)
  1. ZOLOFT [Concomitant]
     Indication: NIGHTMARE
     Dosage: 25 TO 200 MG
     Route: 048
     Dates: start: 20000515
  2. MOTRIN [Concomitant]
     Indication: PAIN
     Route: 048
     Dates: start: 20000515
  3. TRIAMTERIN [Concomitant]
     Dosage: 75 MG HALF TABLET EVERY MORNING
     Route: 048
     Dates: start: 20070101
  4. LORATADINE [Concomitant]
     Route: 048
     Dates: start: 20070101
  5. SEROQUEL [Suspect]
     Route: 048
     Dates: start: 20000612
  6. ZOLOFT [Concomitant]
     Indication: IRRITABILITY
     Dosage: 25 TO 200 MG
     Route: 048
     Dates: start: 20000515
  7. THIAMINE HCL [Concomitant]
     Dates: start: 20000515
  8. METOPROLOL [Concomitant]
     Indication: CARDIAC DISORDER
     Dosage: 50 TO 100 MG
     Route: 048
     Dates: start: 20020503
  9. SEROQUEL [Suspect]
     Indication: PSYCHOTIC DISORDER
     Dosage: 25 TO 600 MG
     Route: 048
     Dates: start: 20000515
  10. METFORMIN [Concomitant]
     Dates: start: 20061001
  11. METOPROLOL [Concomitant]
     Indication: BLOOD PRESSURE ABNORMAL
     Dosage: 50 TO 100 MG
     Route: 048
     Dates: start: 20020503
  12. SIMVASTATIN [Concomitant]
     Route: 048
     Dates: start: 20070101
  13. FOLIC ACID [Concomitant]
     Dates: start: 20000515
  14. ISOSORBIDE DINITRATE [Concomitant]
     Route: 048
     Dates: start: 20020101

REACTIONS (4)
  - HYPOGLYCAEMIA [None]
  - TYPE 2 DIABETES MELLITUS [None]
  - GLUCOSE TOLERANCE IMPAIRED [None]
  - DIABETIC COMPLICATION [None]
